FAERS Safety Report 18648743 (Version 2)
Quarter: 2020Q4

REPORT INFORMATION
  Report Type: Spontaneous
  Country: US (occurrence: US)
  Receive Date: 20201222
  Receipt Date: 20201222
  Transmission Date: 20210114
  Serious: Yes (Other)
  Sender: FDA-Public Use
  Company Number: US-PFIZER INC-2020502729

PATIENT
  Age: 2 Year
  Sex: Male

DRUGS (3)
  1. BUPRENORPHINE. [Suspect]
     Active Substance: BUPRENORPHINE
     Indication: DRUG USE DISORDER
     Dosage: UNK
  2. NALOXONE [Concomitant]
     Active Substance: NALOXONE
     Dosage: 0.1 MG/KG
     Route: 042
  3. NALOXONE [Concomitant]
     Active Substance: NALOXONE
     Dosage: 0.1 MG/KG
     Route: 045

REACTIONS (5)
  - Toxicity to various agents [Unknown]
  - Respiratory depression [Unknown]
  - Miosis [Unknown]
  - Accidental exposure to product by child [Unknown]
  - Lethargy [Unknown]
